FAERS Safety Report 8203018-6 (Version None)
Quarter: 2012Q1

REPORT INFORMATION
  Report Type: 
  Country: None (occurrence: None)
  Receive Date: 20120312
  Receipt Date: 20120227
  Transmission Date: 20120608
  Serious: Yes (Other)
  Sender: FDA-Public Use
  Company Number: IT-BAUSCH-2012BL001451

PATIENT
  Age: 43 Year
  Sex: Female

DRUGS (2)
  1. SALMETEROL [Suspect]
     Indication: ASTHMA
     Route: 048
  2. ALBUTEROL [Suspect]
     Indication: ASTHMA
     Route: 048

REACTIONS (1)
  - CYSTITIS HAEMORRHAGIC [None]
